FAERS Safety Report 9262016 (Version 1)
Quarter: 2013Q2

REPORT INFORMATION
  Report Type: Spontaneous
  Country: US (occurrence: US)
  Receive Date: 20130429
  Receipt Date: 20130429
  Transmission Date: 20140414
  Serious: No
  Sender: FDA-Public Use
  Company Number: US-TEVA-400843USA

PATIENT
  Age: 22 Year
  Sex: Female
  Weight: 70.37 kg

DRUGS (3)
  1. PLAN B ONE-STEP [Suspect]
     Indication: POST COITAL CONTRACEPTION
     Dosage: 1 MILLIGRAM DAILY;
     Route: 048
     Dates: start: 20130318, end: 20130318
  2. DOXYCYCLINE [Concomitant]
     Indication: ACNE
  3. LO OVRAL [Concomitant]
     Indication: ORAL CONTRACEPTION
     Route: 048
     Dates: start: 20130127, end: 20130316

REACTIONS (1)
  - Menstruation irregular [Not Recovered/Not Resolved]
